FAERS Safety Report 12426591 (Version 1)
Quarter: 2016Q2

REPORT INFORMATION
  Report Type: Spontaneous
  Country: CN (occurrence: CN)
  Receive Date: 20160601
  Receipt Date: 20160601
  Transmission Date: 20160815
  Serious: Yes (Hospitalization)
  Sender: FDA-Public Use
  Company Number: CN-SA-2016SA089334

PATIENT
  Age: 75 Year
  Sex: Male
  Weight: 77.5 kg

DRUGS (5)
  1. FOLIC ACID. [Concomitant]
     Active Substance: FOLIC ACID
     Indication: HYPERTENSION
     Route: 048
     Dates: start: 201601
  2. PLAVIX [Suspect]
     Active Substance: CLOPIDOGREL BISULFATE
     Indication: THROMBOSIS
     Route: 048
     Dates: start: 20130719
  3. BAYASPIRIN [Concomitant]
     Active Substance: ASPIRIN
  4. ENALAPRIL [Concomitant]
     Active Substance: ENALAPRIL
     Indication: HYPERTENSION
     Route: 048
     Dates: start: 201601
  5. AMLODIPINE [Concomitant]
     Active Substance: AMLODIPINE BESYLATE
     Indication: HYPERTENSION
     Route: 048
     Dates: start: 201601

REACTIONS (8)
  - Cerebral atrophy [Unknown]
  - Cough [Unknown]
  - Dizziness [Recovered/Resolved]
  - Cerebral infarction [Recovered/Resolved]
  - Dizziness postural [Not Recovered/Not Resolved]
  - Chest discomfort [Recovered/Resolved]
  - Cardiovascular disorder [Not Recovered/Not Resolved]
  - Chest pain [Recovered/Resolved]

NARRATIVE: CASE EVENT DATE: 20140119
